FAERS Safety Report 8459134-7 (Version None)
Quarter: 2012Q2

REPORT INFORMATION
  Report Type: 
  Country: None (occurrence: None)
  Receive Date: 20120622
  Receipt Date: 20120614
  Transmission Date: 20120825
  Serious: Yes (Hospitalization)
  Sender: FDA-Public Use
  Company Number: IE-B.I. PHARMACEUTICALS,INC./RIDGEFIELD-2012-UK-00788UK

PATIENT
  Age: 75 Year
  Sex: Male

DRUGS (9)
  1. LANOXIN [Concomitant]
     Indication: CARDIAC FAILURE CONGESTIVE
  2. LOPERAMIDE [Concomitant]
     Indication: DIARRHOEA
     Route: 048
  3. PRADAXA [Suspect]
     Indication: ATRIAL FIBRILLATION
     Dosage: 220 MG
     Route: 048
  4. AMOXICILLIN AND CLAVULANATE POTASSIUM [Concomitant]
     Indication: URINARY TRACT INFECTION
     Dosage: INJ
  5. LANOXIN [Concomitant]
     Indication: ATRIAL FIBRILLATION
     Dosage: 0.125 MG
     Route: 048
  6. TEMAZEPAM [Concomitant]
     Indication: SEDATION
     Dosage: 10 MG
     Route: 048
  7. QUETIAPINE [Concomitant]
     Indication: COGNITIVE DISORDER
     Dosage: 25 MG
  8. BISOPROLOL [Concomitant]
     Indication: ATRIAL FIBRILLATION
     Dosage: 1.25 MG
     Route: 048
  9. PANTOPRAZOLE [Concomitant]
     Indication: GASTROINTESTINAL DISORDER
     Dosage: 40 MG
     Route: 048

REACTIONS (1)
  - INTERNATIONAL NORMALISED RATIO INCREASED [None]
